FAERS Safety Report 6564541-3 (Version None)
Quarter: 2010Q1

REPORT INFORMATION
  Report Type: 
  Country: None (occurrence: None)
  Receive Date: 20100201
  Receipt Date: 20100118
  Transmission Date: 20100710
  Serious: Yes (Other)
  Sender: FDA-Public Use
  Company Number: PHEH2008US07357

PATIENT
  Sex: Female
  Weight: 69.388 kg

DRUGS (8)
  1. ZOMETA [Suspect]
     Dosage: UNK
     Dates: start: 20050701, end: 20070726
  2. CHEMOTHERAPEUTICS NOS [Concomitant]
  3. FEMARA [Concomitant]
     Dosage: 2.5MG
  4. ROBAXIN [Concomitant]
     Dosage: UNK
  5. PERCOCET [Concomitant]
     Dosage: UNK
  6. MS CONTIN [Concomitant]
     Dosage: UNK
  7. ADVIL [Concomitant]
  8. DURAGESIC-100 [Concomitant]

REACTIONS (21)
  - ANXIETY [None]
  - BACK PAIN [None]
  - BONE DENSITY DECREASED [None]
  - DENTAL CARIES [None]
  - FISTULA DISCHARGE [None]
  - GENERAL PHYSICAL HEALTH DETERIORATION [None]
  - GINGIVAL DISORDER [None]
  - HAEMATURIA [None]
  - JOINT ARTHROPLASTY [None]
  - MASTECTOMY [None]
  - MICTURITION URGENCY [None]
  - OSTEOLYSIS [None]
  - OSTEONECROSIS [None]
  - PAIN [None]
  - PAIN IN JAW [None]
  - PARAESTHESIA ORAL [None]
  - SPINAL COMPRESSION FRACTURE [None]
  - SURGERY [None]
  - SWELLING [None]
  - TOOTH EXTRACTION [None]
  - VERTEBROPLASTY [None]
